FAERS Safety Report 24606229 (Version 3)
Quarter: 2025Q3

REPORT INFORMATION
  Report Type: Report from Study
  Country: US (occurrence: US)
  Receive Date: 20241112
  Receipt Date: 20250810
  Transmission Date: 20251020
  Serious: Yes (Life-Threatening, Hospitalization, Other)
  Sender: ALEXION PHARMACEUTICALS
  Company Number: US-AstraZeneca-CH-00726293A

PATIENT
  Sex: Female

DRUGS (1)
  1. DAPAGLIFLOZIN [Suspect]
     Active Substance: DAPAGLIFLOZIN

REACTIONS (11)
  - Cardiac disorder [Unknown]
  - Atrial fibrillation [Unknown]
  - Pneumonia aspiration [Recovering/Resolving]
  - Fungal infection [Unknown]
  - Bacterial infection [Unknown]
  - Vulvovaginal mycotic infection [Unknown]
  - Laboratory test abnormal [Unknown]
  - Vaginal infection [Unknown]
  - Vaginal haemorrhage [Unknown]
  - Vulvovaginal dryness [Unknown]
  - Condition aggravated [Unknown]
